FAERS Safety Report 13357828 (Version 4)
Quarter: 2017Q3

REPORT INFORMATION
  Report Type: Spontaneous
  Country: US (occurrence: US)
  Receive Date: 20170322
  Receipt Date: 20170918
  Transmission Date: 20171127
  Serious: Yes (Other)
  Sender: FDA-Public Use
  Company Number: US-PFIZER INC-2017117934

PATIENT
  Age: 45 Year
  Sex: Female
  Weight: 98.88 kg

DRUGS (25)
  1. XELJANZ XR [Concomitant]
     Active Substance: TOFACITINIB CITRATE
     Dosage: 1 DF, DAILY (QD)
     Route: 048
  2. KLONOPIN [Concomitant]
     Active Substance: CLONAZEPAM
     Dosage: 2 MG, 2X/DAY
     Route: 048
  3. LYRICA [Suspect]
     Active Substance: PREGABALIN
     Indication: NEURALGIA
     Dosage: 75 MG, 2X/DAY
     Dates: start: 20170308, end: 20170308
  4. TIZANIDINE. [Concomitant]
     Active Substance: TIZANIDINE
     Indication: MUSCLE RELAXANT THERAPY
     Dosage: 4 MG, [1-2 TIMES PER DAY]
  5. SOMA [Concomitant]
     Active Substance: CARISOPRODOL
     Dosage: 350 MG, UNK (1 TABLET BY)
  6. L-THYROXINE [Concomitant]
     Active Substance: LEVOTHYROXINE
     Indication: HYPOTHYROIDISM
     Dosage: 175 UG, 1X/DAY
  7. XELJANZ XR [Concomitant]
     Active Substance: TOFACITINIB CITRATE
     Indication: RHEUMATOID ARTHRITIS
     Dosage: 11 MG, 1X/DAY
  8. VITAMIN D2 [Concomitant]
     Active Substance: ERGOCALCIFEROL
     Dosage: 1 DF, UNK (1 PO Q)
     Route: 048
  9. HYDROXYQUINOLINE [Concomitant]
     Indication: RHEUMATOID ARTHRITIS
     Dosage: 200 MG, 2X/DAY
  10. FOSTEUM PLUS [Concomitant]
     Indication: MENOPAUSE
     Dosage: 1 DF, DAILY
     Dates: start: 20170308
  11. ALPRAZOLAM. [Concomitant]
     Active Substance: ALPRAZOLAM
     Dosage: 2 MG, 2X/DAY
     Route: 048
  12. PANTOPRAZOLE [Concomitant]
     Active Substance: PANTOPRAZOLE
     Dosage: UNK
  13. LEVOTHYROXINE. [Concomitant]
     Active Substance: LEVOTHYROXINE
     Dosage: UNK
  14. LYRICA [Suspect]
     Active Substance: PREGABALIN
     Dosage: UNK
     Dates: start: 201705
  15. BUPROPION. [Concomitant]
     Active Substance: BUPROPION
     Dosage: 100 MG, 1X/DAY
  16. DULOXETINE. [Concomitant]
     Active Substance: DULOXETINE
     Dosage: 60 MG, 2X/DAY
  17. VITAMIN C [Concomitant]
     Active Substance: ASCORBIC ACID
     Dosage: UNK
  18. CARISOPRODOL. [Concomitant]
     Active Substance: CARISOPRODOL
     Indication: MUSCLE RELAXANT THERAPY
     Dosage: 350 MG, UNK [1-2 TIMES PER DAY]
  19. TRAMADOL. [Concomitant]
     Active Substance: TRAMADOL
     Indication: SLEEP DISORDER
     Dosage: 50 MG, AS NEEDED [1-3 TIMES PER DAY] [1 TABLET 2-3]
  20. FOSTEUM PLUS [Concomitant]
     Dosage: 1 DF, 2X/DAY
     Route: 048
  21. LYRICA [Suspect]
     Active Substance: PREGABALIN
     Dosage: 75 MG, 1X/DAY
     Dates: start: 20170309, end: 20170309
  22. ZANAFLEX [Concomitant]
     Active Substance: TIZANIDINE HYDROCHLORIDE
     Dosage: 4 MG, 3X/DAY
     Route: 048
  23. PLAQUENIL [Concomitant]
     Active Substance: HYDROXYCHLOROQUINE SULFATE
     Dosage: 1 DF, 2X/DAY
     Route: 048
  24. CYMBALTA [Concomitant]
     Active Substance: DULOXETINE HYDROCHLORIDE
     Dosage: 60 MG, 2X/DAY
     Route: 048
  25. BUPROPION. [Concomitant]
     Active Substance: BUPROPION
     Dosage: 1 DF, UNK (1 PO EVERY AM)
     Route: 048

REACTIONS (10)
  - Amnesia [Unknown]
  - Myopia [Unknown]
  - Tibia fracture [Unknown]
  - Fall [Unknown]
  - Abnormal behaviour [Unknown]
  - Balance disorder [Unknown]
  - Confusional state [Recovered/Resolved]
  - Speech disorder [Unknown]
  - Dysarthria [Unknown]
  - Contusion [Unknown]

NARRATIVE: CASE EVENT DATE: 20170310
